FAERS Safety Report 17531693 (Version 1)
Quarter: 2020Q1

REPORT INFORMATION
  Report Type: Spontaneous
  Country: US (occurrence: US)
  Receive Date: 20200312
  Receipt Date: 20200312
  Transmission Date: 20200409
  Serious: Yes (Other)
  Sender: FDA-Public Use
  Company Number: US-HIKMA PHARMACEUTICALS USA INC.-US-H14001-20-01125

PATIENT
  Age: 35 Year
  Sex: Male

DRUGS (1)
  1. LIDOCAINE HCL [Suspect]
     Active Substance: LIDOCAINE HYDROCHLORIDE
     Indication: PRODUCT USED FOR UNKNOWN INDICATION
     Route: 065

REACTIONS (5)
  - Paraesthesia [Unknown]
  - Hypoaesthesia [Unknown]
  - Dizziness [Unknown]
  - Respiratory disorder [Unknown]
  - Chest pain [Unknown]

NARRATIVE: CASE EVENT DATE: 20200202
